FAERS Safety Report 4276039-6 (Version None)
Quarter: 2004Q1

REPORT INFORMATION
  Report Type: 
  Country: None (occurrence: None)
  Receive Date: 20040121
  Receipt Date: 20030709
  Transmission Date: 20041129
  Serious: Yes (Other)
  Sender: FDA-Public Use
  Company Number: US-GLAXOSMITHKLINE-A0416345A

PATIENT
  Sex: Male

DRUGS (1)
  1. VALTREX [Suspect]
     Dosage: 1G UNKNOWN
     Route: 048
     Dates: start: 20020101

REACTIONS (1)
  - HEPATIC ENZYME INCREASED [None]
